FAERS Safety Report 5147208-8 (Version None)
Quarter: 2006Q4

REPORT INFORMATION
  Report Type: 
  Country: None (occurrence: None)
  Receive Date: 20061103
  Receipt Date: 20061019
  Transmission Date: 20070319
  Serious: Yes (Death, Other)
  Sender: FDA-Public Use
  Company Number: 2006JP004237

PATIENT
  Sex: Male

DRUGS (5)
  1. PROGRAF [Suspect]
     Indication: LIVER TRANSPLANT
  2. METHYLPREDNISOLONE [Concomitant]
  3. GANCICLOVIR [Concomitant]
  4. ZADAXIN INJECTION [Concomitant]
  5. IMMUNOGLOBULIN (IMMUNOGLOBULIN) [Concomitant]

REACTIONS (6)
  - ACUTE RESPIRATORY DISTRESS SYNDROME [None]
  - PNEUMONIA CYTOMEGALOVIRAL [None]
  - PNEUMONIA STAPHYLOCOCCAL [None]
  - RESPIRATORY FAILURE [None]
  - RESPIRATORY MONILIASIS [None]
  - SHOCK [None]
